FAERS Safety Report 7077781-4 (Version None)
Quarter: 2010Q4

REPORT INFORMATION
  Report Type: 
  Country: None (occurrence: None)
  Receive Date: 20101101
  Receipt Date: 20101020
  Transmission Date: 20110411
  Serious: Yes (Death)
  Sender: FDA-Public Use
  Company Number: JP-ABBOTT-10P-087-0682438-00

PATIENT
  Age: 77 Year
  Sex: Male

DRUGS (5)
  1. LEUPROLIDE ACETATE [Suspect]
     Indication: PROSTATE CANCER STAGE IV
     Route: 058
     Dates: start: 20060526, end: 20070223
  2. LEUPROLIDE ACETATE [Suspect]
     Route: 058
     Dates: start: 20070829, end: 20070829
  3. ADALAT CC [Concomitant]
     Indication: HYPERTENSION
     Route: 048
  4. FLUITRAN [Concomitant]
     Indication: HYPERTENSION
     Route: 048
  5. BICALUTAMIDE [Concomitant]
     Indication: PROSTATE CANCER STAGE IV
     Route: 048
     Dates: start: 20070223

REACTIONS (1)
  - PROSTATE CANCER STAGE IV [None]
